FAERS Safety Report 21941276 (Version 1)
Quarter: 2023Q1

REPORT INFORMATION
  Report Type: Report from Study
  Country: US (occurrence: US)
  Receive Date: 20230202
  Receipt Date: 20230202
  Transmission Date: 20230417
  Serious: No
  Sender: FDA-Public Use
  Company Number: US-EXELIXIS-CABO-22054062

PATIENT
  Sex: Male

DRUGS (15)
  1. CABOMETYX [Suspect]
     Active Substance: CABOZANTINIB S-MALATE
     Indication: Renal cancer
     Dosage: 60 MG, QD
     Route: 048
  2. VITAMIN B COMPLEX [Concomitant]
     Active Substance: CYANOCOBALAMIN\DEXPANTHENOL\NIACINAMIDE\PYRIDOXINE HYDROCHLORIDE\RIBOFLAVIN 5^-PHOSPHATE SODIUM\THIA
  3. VITAMIN B12 [Concomitant]
     Active Substance: CYANOCOBALAMIN
  4. DULOXETINE HYDROCHLORIDE [Concomitant]
     Active Substance: DULOXETINE HYDROCHLORIDE
  5. GLUCOSAMINE [Concomitant]
     Active Substance: GLUCOSAMINE
  6. LEVOTHYROXINE [Concomitant]
     Active Substance: LEVOTHYROXINE
  7. MAGNESIUM [Concomitant]
     Active Substance: MAGNESIUM
  8. METFORMIN [Concomitant]
     Active Substance: METFORMIN HYDROCHLORIDE
  9. VITAMINS [Concomitant]
     Active Substance: VITAMINS
  10. NIACIN [Concomitant]
     Active Substance: NIACIN
  11. FISH OIL [Concomitant]
     Active Substance: FISH OIL
  12. ROSUVASTATIN [Concomitant]
     Active Substance: ROSUVASTATIN
  13. VITAMIN D [Concomitant]
     Active Substance: VITAMIN D NOS
  14. ALLOPURINOL [Concomitant]
     Active Substance: ALLOPURINOL
  15. SIMVASTATIN [Concomitant]
     Active Substance: SIMVASTATIN

REACTIONS (5)
  - Oropharyngeal pain [Unknown]
  - Fatigue [Unknown]
  - Decreased appetite [Unknown]
  - Weight decreased [Unknown]
  - Dyspnoea exertional [Unknown]
